FAERS Safety Report 5583084-7 (Version None)
Quarter: 2008Q1

REPORT INFORMATION
  Report Type: 
  Country: None (occurrence: None)
  Receive Date: 20080107
  Receipt Date: 20071227
  Transmission Date: 20080703
  Serious: Yes (Hospitalization, Other)
  Sender: FDA-Public Use
  Company Number: US-PURDUE-USA_2007_0030907

PATIENT
  Sex: Female
  Weight: 59 kg

DRUGS (15)
  1. OXYCONTIN [Suspect]
     Indication: BACK PAIN
     Dosage: 40 MG, Q8H
     Dates: start: 20030101, end: 20040224
  2. ACTIQ [Suspect]
     Indication: BACK PAIN
     Dosage: 3800 MCG, DAILY
     Route: 048
     Dates: start: 20030101, end: 20040224
  3. BENTYL [Concomitant]
  4. QUININE [Concomitant]
  5. PROMETHAZINE [Concomitant]
  6. TRAZODONE HCL [Concomitant]
  7. NEURONTIN [Concomitant]
  8. EFFEXOR [Concomitant]
  9. VISTARIL [Concomitant]
  10. ZYRTEC [Concomitant]
  11. GABITRIL [Concomitant]
  12. IDOXIFENE [Concomitant]
  13. LEXAPRO [Concomitant]
  14. CLONIDINE [Concomitant]
  15. THIAMINE [Concomitant]

REACTIONS (2)
  - MAJOR DEPRESSION [None]
  - POLYSUBSTANCE DEPENDENCE [None]
